FAERS Safety Report 8084905-9 (Version None)
Quarter: 2012Q1

REPORT INFORMATION
  Report Type: 
  Country: None (occurrence: None)
  Receive Date: 20120128
  Receipt Date: 20110325
  Transmission Date: 20120608
  Serious: No
  Sender: FDA-Public Use
  Company Number: US-ABBOTT-11P-163-0714660-00

PATIENT
  Age: 22 Year
  Sex: Female

DRUGS (4)
  1. HUMIRA [Suspect]
     Indication: PSORIASIS
     Dates: start: 20110301
  2. CLONIDINE [Concomitant]
     Indication: INSOMNIA
     Dosage: AT NIGHT
  3. FOCALIN [Concomitant]
     Indication: ATTENTION DEFICIT/HYPERACTIVITY DISORDER
  4. LUNESTA [Concomitant]
     Indication: INSOMNIA
     Dosage: AT BEDTIME

REACTIONS (5)
  - INCORRECT DOSE ADMINISTERED [None]
  - DEVICE MALFUNCTION [None]
  - WRONG TECHNIQUE IN DRUG USAGE PROCESS [None]
  - LOCAL SWELLING [None]
  - HYPOAESTHESIA [None]
